FAERS Safety Report 24193306 (Version 1)
Quarter: 2024Q3

REPORT INFORMATION
  Report Type: Report from Study
  Country: ZA (occurrence: None)
  Receive Date: 20240809
  Receipt Date: 20240809
  Transmission Date: 20241017
  Serious: Yes (Life-Threatening, Hospitalization, Other)
  Sender: ASTRAZENECA
  Company Number: 2023A052718

PATIENT
  Age: 58 Year
  Sex: Male

DRUGS (7)
  1. BUDESONIDE\FORMOTEROL [Suspect]
     Active Substance: BUDESONIDE\FORMOTEROL
     Indication: Asthma
     Dosage: 120 DOSE, 160 UG/INHALION UNKNOWN UNKNOWN
     Route: 055
  2. ASPIRIN [Concomitant]
     Active Substance: ASPIRIN
     Indication: Blood disorder
     Route: 048
  3. ATORVASTATIN [Concomitant]
     Active Substance: ATORVASTATIN
     Indication: Blood cholesterol
     Route: 048
  4. AMITRIPTYLINE [Concomitant]
     Active Substance: AMITRIPTYLINE
     Indication: Depression
     Route: 048
  5. ATIVAN [Concomitant]
     Active Substance: LORAZEPAM
     Indication: Anxiety
     Route: 048
  6. SPIRACTIN [Concomitant]
     Indication: Hypertension
     Route: 048
  7. DYNA-PENTOXYFILLINE SR [Concomitant]
     Indication: Circulatory collapse
     Route: 048

REACTIONS (2)
  - Small intestine carcinoma [Unknown]
  - Pneumothorax [Unknown]
